FAERS Safety Report 6938141-7 (Version None)
Quarter: 2010Q3

REPORT INFORMATION
  Report Type: 
  Country: None (occurrence: None)
  Receive Date: 20100824
  Receipt Date: 20100816
  Transmission Date: 20110219
  Serious: Yes (Hospitalization)
  Sender: FDA-Public Use
  Company Number: PHHO2010IN05070

PATIENT
  Sex: Male

DRUGS (4)
  1. CYCLOSPORINE [Suspect]
     Indication: RENAL TRANSPLANT
     Dosage: 200 MG
     Route: 048
     Dates: start: 20071107
  2. MYCOPHENOLATE MOFETIL [Concomitant]
     Indication: RENAL TRANSPLANT
     Dosage: UNK
     Dates: start: 20071107
  3. PREDNISOLONE [Concomitant]
     Indication: RENAL TRANSPLANT
     Dosage: UNK
     Dates: start: 20071107
  4. SHELCAL [Concomitant]

REACTIONS (3)
  - ANGIOPATHY [None]
  - FOCAL SEGMENTAL GLOMERULOSCLEROSIS [None]
  - GLOMERULONEPHRITIS PROLIFERATIVE [None]
